FAERS Safety Report 9403709 (Version 2)
Quarter: 2013Q3

REPORT INFORMATION
  Report Type: Other
  Country: TR (occurrence: TR)
  Receive Date: 20130717
  Receipt Date: 20130725
  Transmission Date: 20140515
  Serious: Yes (Death, Hospitalization)
  Sender: FDA-Public Use
  Company Number: TR-BRISTOL-MYERS SQUIBB COMPANY-19103746

PATIENT
  Age: 17 Year
  Sex: Female

DRUGS (3)
  1. METFORMIN HCL [Suspect]
     Dosage: 1DF: 75PILLS?METFORMIN 1000MG
  2. RUPATADINE [Suspect]
     Dosage: 1DF: 20PILLS?RUPATADINE 10MG
  3. AMITRIPTYLINE [Concomitant]
     Indication: MAJOR DEPRESSION

REACTIONS (4)
  - Completed suicide [Fatal]
  - Ventricular tachycardia [Fatal]
  - Lactic acidosis [Fatal]
  - Intentional overdose [Fatal]
